FAERS Safety Report 23769049 (Version 5)
Quarter: 2024Q3

REPORT INFORMATION
  Report Type: Spontaneous
  Country: US (occurrence: US)
  Receive Date: 20240422
  Receipt Date: 20240916
  Transmission Date: 20241017
  Serious: Yes (Hospitalization, Other)
  Sender: XERIS PHARMACEUTICALS
  Company Number: US-BRIAN CONNER SVP QUALITY AND CHIEF COMPLIANCE OFFICER-2024XER00184

PATIENT
  Sex: Female

DRUGS (5)
  1. RECORLEV [Suspect]
     Active Substance: LEVOKETOCONAZOLE
     Indication: Cushing^s syndrome
     Dosage: 1 TABLETS (150 MG), 2X/DAY
     Route: 048
     Dates: start: 20240319
  2. RECORLEV [Suspect]
     Active Substance: LEVOKETOCONAZOLE
     Dosage: 3 TABLETS (450 MG), 2X/DAY
     Route: 048
     Dates: start: 20240621, end: 2024
  3. RECORLEV [Suspect]
     Active Substance: LEVOKETOCONAZOLE
     Dosage: 4 TABLETS (600 MG), 2X/DAY
     Route: 048
     Dates: start: 2024
  4. VALSARTAN [Concomitant]
     Active Substance: VALSARTAN
  5. UNSPECIFIED INGREDIENT [Concomitant]
     Active Substance: UNSPECIFIED INGREDIENT

REACTIONS (9)
  - Hypotension [Unknown]
  - Cerebrovascular accident [Unknown]
  - Madarosis [Not Recovered/Not Resolved]
  - Fall [Unknown]
  - Feeling abnormal [Unknown]
  - Quality of life decreased [Unknown]
  - Depression [Unknown]
  - Alopecia [Not Recovered/Not Resolved]
  - Nausea [Not Recovered/Not Resolved]

NARRATIVE: CASE EVENT DATE: 20240101
